FAERS Safety Report 8004853-X (Version None)
Quarter: 2011Q4

REPORT INFORMATION
  Report Type: 
  Country: None (occurrence: None)
  Receive Date: 20111223
  Receipt Date: 20111216
  Transmission Date: 20120403
  Serious: Yes (Other)
  Sender: FDA-Public Use
  Company Number: CHPA2011CA018226

PATIENT
  Age: 62 Year
  Sex: Male

DRUGS (1)
  1. MAALOX NIGHTTIME [Suspect]
     Indication: GASTRIC PH DECREASED
     Dosage: 3 TSP, ONCE/SINGLE
     Route: 048
     Dates: start: 20111215, end: 20111215

REACTIONS (6)
  - OFF LABEL USE [None]
  - THROAT TIGHTNESS [None]
  - TONGUE DISORDER [None]
  - DYSPHAGIA [None]
  - HYPERSENSITIVITY [None]
  - BURNING SENSATION [None]
